FAERS Safety Report 16746559 (Version 1)
Quarter: 2019Q3

REPORT INFORMATION
  Report Type: Spontaneous
  Country: GB (occurrence: GB)
  Receive Date: 20190827
  Receipt Date: 20190827
  Transmission Date: 20191005
  Serious: Yes (Disabling, Other)
  Sender: FDA-Public Use
  Company Number: GB-TEVA-2019-GB-1097229

PATIENT
  Age: 49 Year
  Sex: Male
  Weight: 62 kg

DRUGS (13)
  1. RAMIPRIL. [Concomitant]
     Active Substance: RAMIPRIL
     Dosage: 1 DF
     Dates: start: 20190212
  2. MIRTAZAPINE. [Suspect]
     Active Substance: MIRTAZAPINE
     Dosage: AT NIGHT, 15 MG
     Dates: start: 20190607
  3. DIHYDROCODEINE [Concomitant]
     Active Substance: DIHYDROCODEINE
     Dosage: EVERY 4-6 HOURS, 1 DF
     Dates: start: 20190607
  4. CREON [Concomitant]
     Active Substance: PANCRELIPASE AMYLASE\PANCRELIPASE LIPASE\PANCRELIPASE PROTEASE
     Dosage: THREE TIMES A DAY
     Dates: start: 20190212
  5. CODEINE PHOSPHATE [Concomitant]
     Active Substance: CODEINE PHOSPHATE
     Indication: ABDOMINAL PAIN UPPER
     Dosage: 1-2 UP TO 4 TIMES A DAY
     Dates: start: 20190516, end: 20190523
  6. VENTOLIN [Concomitant]
     Active Substance: ALBUTEROL SULFATE
     Dosage: 2 DF
     Route: 055
     Dates: start: 20190212
  7. THIAMINE. [Concomitant]
     Active Substance: THIAMINE
     Dosage: 1 DF
     Dates: start: 20190212
  8. PANTOPRAZOLE [Concomitant]
     Active Substance: PANTOPRAZOLE
     Dosage: EACH MORNING, 2 DF
     Dates: start: 20190212
  9. SERTRALINE [Concomitant]
     Active Substance: SERTRALINE HYDROCHLORIDE
     Dosage: 1 DF
     Dates: start: 20190212
  10. FORTISIP [Concomitant]
     Active Substance: CARBOHYDRATES\FATTY ACIDS\MINERALS\PROTEIN\VITAMINS
     Dosage: USE AS DIRECTED
     Dates: start: 20190607, end: 20190608
  11. TRAMADOL. [Concomitant]
     Active Substance: TRAMADOL
     Indication: ABDOMINAL PAIN UPPER
     Dosage: TAKE 1-2 DAILY
     Dates: start: 20190212, end: 20190607
  12. VITAMIN B [Concomitant]
     Active Substance: VITAMIN B
     Dosage: 2 DF
     Dates: start: 20190212
  13. BISOPROLOL [Concomitant]
     Active Substance: BISOPROLOL
     Dosage: 1 DF
     Dates: start: 20190212

REACTIONS (3)
  - Fear [Unknown]
  - Anxiety [Unknown]
  - Depressed mood [Recovered/Resolved]
